FAERS Safety Report 6497367-X (Version None)
Quarter: 2009Q4

REPORT INFORMATION
  Report Type: 
  Country: None (occurrence: None)
  Receive Date: 20091215
  Receipt Date: 20091123
  Transmission Date: 20100525
  Serious: No
  Sender: FDA-Public Use
  Company Number: A0812196A

PATIENT
  Age: 79 Year
  Sex: Male
  Weight: 97.7 kg

DRUGS (4)
  1. AVODART [Suspect]
     Dosage: 1CAP PER DAY
     Route: 048
     Dates: start: 20080101, end: 20080101
  2. ONE-A-DAY VITAMINS [Concomitant]
  3. FISH OIL [Concomitant]
  4. VYTORIN [Concomitant]

REACTIONS (3)
  - BREAST SWELLING [None]
  - BREAST TENDERNESS [None]
  - GYNAECOMASTIA [None]
